FAERS Safety Report 9745596 (Version 1)
Quarter: 2013Q4

REPORT INFORMATION
  Report Type: Spontaneous
  Country: US (occurrence: US)
  Receive Date: 20131211
  Receipt Date: 20131211
  Transmission Date: 20140711
  Serious: No
  Sender: FDA-Public Use
  Company Number: US-PFIZER INC-2013349801

PATIENT
  Age: 64 Year
  Sex: Female

DRUGS (1)
  1. ZYVOX [Suspect]
     Indication: STAPHYLOCOCCAL INFECTION
     Dosage: 600 MG, 2X/DAY
     Route: 048

REACTIONS (6)
  - Swollen tongue [Unknown]
  - Tongue blistering [Unknown]
  - Dysphagia [Unknown]
  - Pruritus generalised [Unknown]
  - Formication [Unknown]
  - Dehydration [Unknown]
